FAERS Safety Report 24594079 (Version 1)
Quarter: 2024Q4

REPORT INFORMATION
  Report Type: Spontaneous
  Country: CA (occurrence: CA)
  Receive Date: 20241108
  Receipt Date: 20241108
  Transmission Date: 20250114
  Serious: Yes (Other)
  Sender: RANBAXY
  Company Number: CA-SUN PHARMACEUTICAL INDUSTRIES LTD-2024R1-477860

PATIENT
  Age: 59 Year
  Sex: Female

DRUGS (1)
  1. TRIAMCINOLONE [Suspect]
     Active Substance: TRIAMCINOLONE
     Indication: Rosai-Dorfman syndrome
     Dosage: 10-20 MG/ML INJECTED EVERY 6 WEEKS
     Route: 065

REACTIONS (1)
  - Disease progression [Unknown]
